FAERS Safety Report 21916802 (Version 2)
Quarter: 2023Q1

REPORT INFORMATION
  Report Type: Spontaneous
  Country: KE (occurrence: KE)
  Receive Date: 20230126
  Receipt Date: 20230201
  Transmission Date: 20230418
  Serious: Yes (Other)
  Sender: FDA-Public Use
  Company Number: KE-GE HEALTHCARE-2023CSU000458

PATIENT
  Sex: Male
  Weight: 60 kg

DRUGS (4)
  1. VISIPAQUE [Suspect]
     Active Substance: IODIXANOL
     Indication: Computerised tomogram abdomen
     Dosage: 80 ML, SINGLE
     Route: 042
     Dates: start: 20230123, end: 20230123
  2. VISIPAQUE [Suspect]
     Active Substance: IODIXANOL
     Indication: Hepatobiliary neoplasm
  3. OMNIPAQUE [Suspect]
     Active Substance: IOHEXOL
     Indication: Computerised tomogram abdomen
     Dosage: 50 ML, SINGLE
     Route: 048
     Dates: start: 20230123, end: 20230123
  4. OMNIPAQUE [Suspect]
     Active Substance: IOHEXOL
     Indication: Hepatobiliary neoplasm

REACTIONS (2)
  - Vomiting [Recovered/Resolved]
  - Feeling hot [Recovered/Resolved]

NARRATIVE: CASE EVENT DATE: 20230123
